FAERS Safety Report 24673147 (Version 1)
Quarter: 2024Q4

REPORT INFORMATION
  Report Type: Spontaneous
  Country: US (occurrence: US)
  Receive Date: 20241128
  Receipt Date: 20241128
  Transmission Date: 20250114
  Serious: No
  Sender: IBSA INSTITUT BIOCHIMIQUE
  Company Number: US-IBSA PHARMA INC.-2023IBS000807

PATIENT

DRUGS (1)
  1. TIROSINT [Suspect]
     Active Substance: LEVOTHYROXINE SODIUM
     Indication: Hypothyroidism
     Dosage: UNK
     Route: 065
     Dates: start: 2021, end: 2023

REACTIONS (7)
  - Illness [Unknown]
  - Panic attack [Unknown]
  - Paraesthesia [Unknown]
  - Hypersensitivity [Unknown]
  - Headache [Unknown]
  - Wheezing [Unknown]
  - Urticaria [Unknown]
